FAERS Safety Report 7350561-8 (Version None)
Quarter: 2011Q1

REPORT INFORMATION
  Report Type: 
  Country: None (occurrence: None)
  Receive Date: 20110222
  Receipt Date: 20101203
  Transmission Date: 20110831
  Serious: No
  Sender: FDA-Public Use
  Company Number: 023261

PATIENT
  Sex: Male
  Weight: 73 kg

DRUGS (4)
  1. LACOSAMIDE [Suspect]
     Indication: CONVULSION
     Dosage: (50 MG BID ORAL), (100 MG BID ORAL)
     Route: 048
     Dates: start: 20101114, end: 20101202
  2. LACOSAMIDE [Suspect]
     Indication: CONVULSION
     Dosage: (50 MG BID ORAL), (100 MG BID ORAL)
     Route: 048
     Dates: start: 20101203
  3. WELLBUTRIN [Concomitant]
  4. DILANTIN [Concomitant]

REACTIONS (1)
  - VISION BLURRED [None]
